FAERS Safety Report 21400618 (Version 1)
Quarter: 2022Q4

REPORT INFORMATION
  Report Type: Spontaneous
  Country: US (occurrence: US)
  Receive Date: 20221003
  Receipt Date: 20221003
  Transmission Date: 20230112
  Serious: No
  Sender: FDA-Public Use
  Company Number: US-SANOFI-01300435

PATIENT
  Age: 2 Year
  Sex: Male
  Weight: 13.7 kg

DRUGS (1)
  1. DUPIXENT [Suspect]
     Active Substance: DUPILUMAB
     Indication: Eczema
     Dosage: 200 MG Q4W
     Dates: start: 20220825

REACTIONS (1)
  - Product preparation error [Unknown]

NARRATIVE: CASE EVENT DATE: 20220825
